FAERS Safety Report 7311713-6 (Version None)
Quarter: 2011Q1

REPORT INFORMATION
  Report Type: 
  Country: None (occurrence: None)
  Receive Date: 20110224
  Receipt Date: 20110207
  Transmission Date: 20110831
  Serious: Yes (Death, Life-Threatening, Hospitalization, Other)
  Sender: FDA-Public Use
  Company Number: JP-BAYER-200915395BYL

PATIENT
  Sex: Male
  Weight: 43 kg

DRUGS (7)
  1. NEXAVAR [Suspect]
     Dosage: 400 MG
     Route: 048
     Dates: start: 20100721, end: 20100928
  2. GASTROM [Concomitant]
     Indication: GASTRITIS
     Dosage: DAILY DOSE 3 G
     Route: 048
     Dates: start: 20100526, end: 20100928
  3. NEXAVAR [Suspect]
     Dosage: 400 MG, QD
     Route: 048
     Dates: start: 20091230, end: 20100608
  4. MIYA BM [Concomitant]
     Indication: DIARRHOEA
     Dosage: DAILY DOSE 3 G
     Route: 048
     Dates: start: 20100707, end: 20100928
  5. NEXAVAR [Suspect]
     Dosage: 600 MG
     Route: 048
     Dates: start: 20100609, end: 20100720
  6. NEXAVAR [Suspect]
     Indication: RENAL CELL CARCINOMA
     Dosage: 400 MG, BID
     Route: 048
     Dates: start: 20091210, end: 20091224
  7. TAGAMET [Concomitant]
     Indication: GASTRITIS
     Dosage: DAILY DOSE 400 MG
     Route: 048
     Dates: start: 20100526, end: 20100928

REACTIONS (5)
  - THYROID FUNCTION TEST ABNORMAL [None]
  - ANAEMIA [None]
  - RASH ERYTHEMATOUS [None]
  - METASTATIC RENAL CELL CARCINOMA [None]
  - HAEMATURIA [None]
